FAERS Safety Report 4923259-0 (Version None)
Quarter: 2006Q1

REPORT INFORMATION
  Report Type: 
  Country: None (occurrence: None)
  Receive Date: 20060127
  Receipt Date: 20051205
  Transmission Date: 20060701
  Serious: Yes (Other)
  Sender: FDA-Public Use
  Company Number: 2005166049

PATIENT
  Age: 48 Year
  Sex: Female
  Weight: 72.5755 kg

DRUGS (11)
  1. LYRICA [Suspect]
     Indication: DIABETIC NEUROPATHY
     Dosage: 100 MG (50  MG, 2 IN 1 D), ORAL
     Route: 048
     Dates: start: 20051018
  2. INSULIN (INSULIN) [Concomitant]
  3. INSULIN ILETIN I REGULAR (INSULIN) [Concomitant]
  4. AVAPRO [Concomitant]
  5. MONOPRIL [Concomitant]
  6. DEMADEX [Concomitant]
  7. ALDACTONE [Concomitant]
  8. EFFEXOR [Concomitant]
  9. ALBUTEROL [Concomitant]
  10. FLOVENT [Concomitant]
  11. FLONASE [Concomitant]

REACTIONS (4)
  - BLOOD PRESSURE DECREASED [None]
  - DIZZINESS [None]
  - SOMNOLENCE [None]
  - VISION BLURRED [None]
